FAERS Safety Report 4641169-3 (Version None)
Quarter: 2005Q2

REPORT INFORMATION
  Report Type: 
  Country: None (occurrence: None)
  Receive Date: 20050421
  Receipt Date: 20050411
  Transmission Date: 20051028
  Serious: Yes (Hospitalization)
  Sender: FDA-Public Use
  Company Number: US-BRISTOL-MYERS SQUIBB COMPANY-12929493

PATIENT
  Age: 49 Year
  Sex: Female

DRUGS (1)
  1. SERZONE [Suspect]
     Dosage: ADDITIONAL THERAPY FROM: JULY 2000 TO AUGUST 2000
     Route: 048
     Dates: start: 19960424, end: 19980417

REACTIONS (1)
  - LIVER TRANSPLANT [None]
